FAERS Safety Report 24258627 (Version 4)
Quarter: 2025Q2

REPORT INFORMATION
  Report Type: Spontaneous
  Country: US (occurrence: US)
  Receive Date: 20240828
  Receipt Date: 20250428
  Transmission Date: 20250716
  Serious: Yes (Hospitalization, Other)
  Sender: PFIZER
  Company Number: US-PFIZER INC-202400243380

PATIENT
  Age: 79 Year
  Sex: Female

DRUGS (10)
  1. BRAFTOVI [Suspect]
     Active Substance: ENCORAFENIB
     Indication: Lung carcinoma cell type unspecified stage IV
  2. BRAFTOVI [Suspect]
     Active Substance: ENCORAFENIB
     Dosage: 225MG AM AND 150MG PM/TAKE 3 CAPS (225MG) PO QAM AND 2 CAPS (150MG) QPM WITH OR WITHOUT FOOD
     Route: 048
     Dates: start: 20250311
  3. MEKTOVI [Suspect]
     Active Substance: BINIMETINIB
     Indication: Lung carcinoma cell type unspecified stage IV
     Dosage: 15 MG, 2X/DAY
  4. MEKTOVI [Suspect]
     Active Substance: BINIMETINIB
     Dosage: 45MG AM AND 30MG PM/TAKE 3 TABS (45MG) PO QAM AND 2 TABS (30MG) QPM WITH OR WITHOUT FOOD
     Route: 048
     Dates: start: 20250311
  5. ATENOLOL [Concomitant]
     Active Substance: ATENOLOL
  6. CANDESARTAN [Concomitant]
     Active Substance: CANDESARTAN
  7. CLONAZEPAM [Concomitant]
     Active Substance: CLONAZEPAM
  8. MAGNESIUM [Concomitant]
     Active Substance: MAGNESIUM
  9. NEXIUM [Concomitant]
     Active Substance: ESOMEPRAZOLE MAGNESIUM
  10. VITAMIN B12 [Concomitant]
     Active Substance: CYANOCOBALAMIN

REACTIONS (2)
  - Embolism [Not Recovered/Not Resolved]
  - Off label use [Unknown]
